FAERS Safety Report 23884288 (Version 2)
Quarter: 2024Q4

REPORT INFORMATION
  Report Type: Spontaneous
  Country: JP (occurrence: JP)
  Receive Date: 20240522
  Receipt Date: 20241111
  Transmission Date: 20250115
  Serious: Yes (Hospitalization, Other)
  Sender: AMGEN
  Company Number: JP-AMGEN-JPNSP2023222100

PATIENT
  Age: 76 Year
  Sex: Male
  Weight: 69 kg

DRUGS (8)
  1. LUMAKRAS [Suspect]
     Active Substance: SOTORASIB
     Indication: Non-small cell lung cancer stage III
     Dosage: 960 MILLIGRAM, QD
     Route: 048
     Dates: start: 20220521, end: 20220831
  2. LUMAKRAS [Suspect]
     Active Substance: SOTORASIB
     Indication: Lung adenocarcinoma
     Dosage: 480 MILLIGRAM, QD
     Route: 048
     Dates: start: 20230519, end: 20240625
  3. PEMBROLIZUMAB [Suspect]
     Active Substance: PEMBROLIZUMAB
     Indication: Non-small cell lung cancer stage III
     Dosage: UNK
     Route: 065
  4. PREDONINE [Concomitant]
     Active Substance: PREDNISOLONE
     Indication: Hypothyroidism
     Dosage: 5 MILLIGRAM, QD (1 TABLET IN THE MORNING)
     Route: 065
     Dates: start: 20210429
  5. PREDONINE [Concomitant]
     Active Substance: PREDNISOLONE
     Dosage: 60 MILLIGRAM, QD
     Route: 065
     Dates: start: 20220909
  6. BENZBROMARONE [Concomitant]
     Active Substance: BENZBROMARONE
     Indication: Hyperuricaemia
     Dosage: 50 MILLIGRAM, QD (0.5 TABLET DAILY MORNING AND EVENING)
     Route: 065
  7. AMLODIPINE BESYLATE [Concomitant]
     Active Substance: AMLODIPINE BESYLATE
     Indication: Hypertension
     Dosage: 2.5 MILLIGRAM, QD (4 TABLETS IN THE MORNING)
     Route: 048
  8. LEVOTHYROXINE SODIUM [Concomitant]
     Active Substance: LEVOTHYROXINE SODIUM
     Indication: Hypothyroidism
     Dosage: 25 MICROGRAM, QD (1 TABLET IN THE MORNING)
     Route: 065
     Dates: start: 20210429

REACTIONS (3)
  - Lung adenocarcinoma [Recovering/Resolving]
  - Interstitial lung disease [Recovering/Resolving]
  - Therapy partial responder [Unknown]

NARRATIVE: CASE EVENT DATE: 20220817
